FAERS Safety Report 5122606-7 (Version None)
Quarter: 2006Q4

REPORT INFORMATION
  Report Type: 
  Country: None (occurrence: None)
  Receive Date: 20061005
  Receipt Date: 20061005
  Transmission Date: 20070319
  Serious: Yes (Hospitalization)
  Sender: FDA-Public Use
  Company Number: None

PATIENT
  Age: 87 Year
  Sex: Male
  Weight: 81 kg

DRUGS (14)
  1. WARFARIN SODIUM [Suspect]
     Indication: ATRIAL FIBRILLATION
     Dosage: 4MG + 3MG TU/SA+S/M/W/T/F PO
     Route: 048
     Dates: start: 20030101, end: 20061004
  2. ALLOPURINOL [Concomitant]
  3. AMLODIPINE [Concomitant]
  4. CARBOXYMETHYLCELLULOSE PF 0.5% [Concomitant]
  5. CYANOCOBALAMIN -B12- [Concomitant]
  6. HYDROCHLOROTHIAZIDE [Concomitant]
  7. HYDROCODONE BITARTRATE + ACETAMINOPHEN [Concomitant]
  8. LORAZEPAM [Concomitant]
  9. METOPROLOL TARTRATE [Concomitant]
  10. OMEPRAZOLE [Concomitant]
  11. SIMVASTATIN [Concomitant]
  12. VALSARTAN [Concomitant]
  13. COUMADIN [Concomitant]
  14. ZOLPIDEM TARTRATE [Concomitant]

REACTIONS (1)
  - CEREBROVASCULAR ACCIDENT [None]
